FAERS Safety Report 5564011-5 (Version None)
Quarter: 2007Q4

REPORT INFORMATION
  Report Type: 
  Country: None (occurrence: None)
  Receive Date: 20071217
  Receipt Date: 20071211
  Transmission Date: 20080405
  Serious: Yes (Other)
  Sender: FDA-Public Use
  Company Number: US-ELI_LILLY_AND_COMPANY-US200706004950

PATIENT
  Sex: Male

DRUGS (10)
  1. BYETTA [Suspect]
     Dosage: 5 UG, UNK
     Route: 058
     Dates: start: 20070312, end: 20070424
  2. BYETTA [Suspect]
     Dosage: 10 UG, 2/D
     Route: 058
     Dates: start: 20070424, end: 20070619
  3. BYETTA [Suspect]
     Dosage: 5 UG, 2/D
     Route: 058
     Dates: start: 20070619, end: 20070601
  4. METFORMIN HCL [Concomitant]
     Dosage: 500 MG, 2/D
     Route: 048
     Dates: start: 20010101
  5. GLYBURIDE [Concomitant]
     Dates: end: 20070301
  6. TESTOSTERONE ENANTHATE [Concomitant]
     Dosage: 100 MG, OTHER
     Route: 030
  7. LISINOPRIL [Concomitant]
     Dosage: 40 MG, DAILY (1/D)
  8. HYDROCHLOROTHIAZIDE [Concomitant]
     Dosage: 25 MG, DAILY (1/D)
  9. PRAVACHOL [Concomitant]
     Dosage: 20 MG, DAILY (1/D)
  10. ASPIRIN [Concomitant]
     Dosage: 81 MG, DAILY (1/D)

REACTIONS (3)
  - DEEP VEIN THROMBOSIS [None]
  - DIZZINESS [None]
  - FEELING ABNORMAL [None]
